FAERS Safety Report 4845237-2 (Version None)
Quarter: 2005Q4

REPORT INFORMATION
  Report Type: 
  Country: None (occurrence: None)
  Receive Date: 20051125
  Receipt Date: 20051116
  Transmission Date: 20060501
  Serious: Yes (Hospitalization, Other)
  Sender: FDA-Public Use
  Company Number: HQWYE592517NOV05

PATIENT
  Age: 35 Year
  Sex: Male

DRUGS (2)
  1. EFFEXOR XR [Suspect]
     Indication: MAJOR DEPRESSION
     Dosage: 150 MG 1X PER 1 DAY, ORAL
     Route: 048
     Dates: start: 19980101, end: 20051111
  2. EFFEXOR XR [Suspect]
     Dosage: ORAL
     Route: 048
     Dates: start: 20051101

REACTIONS (7)
  - AGGRESSION [None]
  - ANXIETY [None]
  - DRUG WITHDRAWAL SYNDROME [None]
  - GUN SHOT WOUND [None]
  - MOOD ALTERED [None]
  - SUICIDAL IDEATION [None]
  - SUICIDE ATTEMPT [None]
